FAERS Safety Report 10213757 (Version 5)
Quarter: 2014Q2

REPORT INFORMATION
  Report Type: Spontaneous
  Country: US (occurrence: US)
  Receive Date: 20140603
  Receipt Date: 20140623
  Transmission Date: 20141212
  Serious: Yes (Death, Other)
  Sender: FDA-Public Use
  Company Number: US-PFIZER INC-2000024065US

PATIENT
  Age: 43 Year
  Sex: 0

DRUGS (6)
  1. MOTRIN [Suspect]
     Indication: OVERDOSE
     Route: 048
  2. MOTRIN [Suspect]
     Indication: COMPLETED SUICIDE
  3. FLEXERIL [Suspect]
     Indication: COMPLETED SUICIDE
     Route: 048
  4. FLEXERIL [Suspect]
     Indication: OVERDOSE
  5. ATIVAN [Suspect]
     Indication: COMPLETED SUICIDE
     Route: 048
  6. ATIVAN [Suspect]
     Indication: OVERDOSE

REACTIONS (8)
  - Intentional overdose [Fatal]
  - Completed suicide [Fatal]
  - Coma [Fatal]
  - Alkalosis [Fatal]
  - Convulsion [Fatal]
  - Coagulopathy [Fatal]
  - Brain oedema [Fatal]
  - Coagulation time prolonged [Fatal]
